FAERS Safety Report 8277016-0 (Version None)
Quarter: 2012Q2

REPORT INFORMATION
  Report Type: 
  Country: None (occurrence: None)
  Receive Date: 20120412
  Receipt Date: 20120403
  Transmission Date: 20120825
  Serious: Yes (Hospitalization)
  Sender: FDA-Public Use
  Company Number: AU-ASTRAZENECA-2012SE10953

PATIENT
  Age: 62 Year
  Sex: Female

DRUGS (7)
  1. NEXIUM [Suspect]
     Route: 048
     Dates: start: 20111219, end: 20120101
  2. CALCIUM CARBONATE [Concomitant]
  3. TEGRETOL [Concomitant]
  4. EZETIMIBE [Concomitant]
  5. MODURETIC 5-50 [Concomitant]
  6. LEVOTHYROXINE SODIUM [Concomitant]
  7. CRESTOR [Concomitant]

REACTIONS (3)
  - RENAL FAILURE ACUTE [None]
  - VOMITING [None]
  - GASTRITIS [None]
